FAERS Safety Report 17731308 (Version 13)
Quarter: 2021Q4

REPORT INFORMATION
  Report Type: Report from Study
  Country: None (occurrence: US)
  Receive Date: 20200430
  Receipt Date: 20211210
  Transmission Date: 20220304
  Serious: Yes (Other)
  Sender: FDA-Public Use
  Company Number: US-AKCEA THERAPEUTICS-2020IS001014

PATIENT
  Age: 60 Year
  Sex: Male

DRUGS (5)
  1. TEGSEDI [Suspect]
     Active Substance: INOTERSEN SODIUM
     Indication: Hereditary neuropathic amyloidosis
     Route: 058
     Dates: start: 20191115
  2. DEVICE [Suspect]
     Active Substance: DEVICE
  3. TAFAMIDIS [Concomitant]
     Active Substance: TAFAMIDIS
     Route: 065
  4. LASIX [Concomitant]
     Active Substance: FUROSEMIDE
     Route: 065
  5. LAMICTAL [Concomitant]
     Active Substance: LAMOTRIGINE
     Route: 065

REACTIONS (17)
  - Heart rate decreased [Unknown]
  - Influenza like illness [Unknown]
  - Injection site pain [Recovered/Resolved]
  - Glomerular filtration rate decreased [Not Recovered/Not Resolved]
  - Urinary occult blood positive [Not Recovered/Not Resolved]
  - Red blood cells urine positive [Not Recovered/Not Resolved]
  - Urine abnormality [Not Recovered/Not Resolved]
  - Protein urine present [Unknown]
  - Blood creatinine increased [Unknown]
  - Pleural effusion [Not Recovered/Not Resolved]
  - Food allergy [Not Recovered/Not Resolved]
  - Nausea [Recovered/Resolved]
  - Urine protein/creatinine ratio increased [Unknown]
  - Creatinine urine abnormal [Unknown]
  - Bacterial test positive [Unknown]
  - Crystal urine present [Unknown]
  - Urine ketone body present [Unknown]

NARRATIVE: CASE EVENT DATE: 20191115
